FAERS Safety Report 8804081 (Version 1)
Quarter: 2012Q4

REPORT INFORMATION
  Report Type: 
  Country: US (occurrence: US)
  Receive Date: 20120924
  Receipt Date: 20120924
  Transmission Date: 20130627
  Serious: Yes (Other)
  Sender: FDA-Public Use
  Company Number: US-JNJFOC-20120909541

PATIENT
  Sex: Male

DRUGS (1)
  1. RISPERDAL [Suspect]
     Indication: PRODUCT USED FOR UNKNOWN INDICATION
     Route: 065
     Dates: start: 1990

REACTIONS (8)
  - Nervousness [Unknown]
  - Fatigue [Unknown]
  - Injury [Unknown]
  - Hypertension [Unknown]
  - Insomnia [Unknown]
  - Craniocerebral injury [Unknown]
  - Drug dispensing error [Unknown]
  - Overdose [Unknown]
